FAERS Safety Report 17645175 (Version 1)
Quarter: 2020Q2

REPORT INFORMATION
  Report Type: Spontaneous
  Country: US (occurrence: US)
  Receive Date: 20200408
  Receipt Date: 20200408
  Transmission Date: 20200713
  Serious: Yes (Hospitalization)
  Sender: FDA-Public Use
  Company Number: None

PATIENT
  Age: 60 Year
  Sex: Male

DRUGS (8)
  1. METOPROLOL SUCCINATE. [Concomitant]
     Active Substance: METOPROLOL SUCCINATE
  2. JUBLIA [Concomitant]
     Active Substance: EFINACONAZOLE
  3. COSENTYX [Suspect]
     Active Substance: SECUKINUMAB
     Indication: PSORIASIS
     Dosage: OTHER FREQUENCY: Q4WEEKS
     Route: 058
     Dates: start: 20171012
  4. FLECAINIDE [Concomitant]
     Active Substance: FLECAINIDE
  5. DILTIAZEM. [Concomitant]
     Active Substance: DILTIAZEM
  6. NEXIUM [Concomitant]
     Active Substance: ESOMEPRAZOLE MAGNESIUM
  7. METOPROLOL TARTRATE. [Concomitant]
     Active Substance: METOPROLOL TARTRATE
  8. ELIQUIS [Concomitant]
     Active Substance: APIXABAN

REACTIONS (3)
  - Product dose omission [None]
  - Tachycardia [None]
  - Atrial fibrillation [None]

NARRATIVE: CASE EVENT DATE: 20200401
